FAERS Safety Report 12730151 (Version 1)
Quarter: 2016Q3

REPORT INFORMATION
  Report Type: Spontaneous
  Country: US (occurrence: US)
  Receive Date: 20160909
  Receipt Date: 20160909
  Transmission Date: 20161109
  Serious: Yes (Hospitalization)
  Sender: FDA-Public Use
  Company Number: US-ACTELION-A-US2016-141592

PATIENT
  Age: 60 Year
  Sex: Male

DRUGS (2)
  1. VELETRI [Suspect]
     Active Substance: EPOPROSTENOL
     Indication: PULMONARY HYPERTENSION
     Dosage: 14.8 NG/KG, PER MIN
     Route: 042
     Dates: start: 20150428
  2. SILDENAFIL. [Concomitant]
     Active Substance: SILDENAFIL

REACTIONS (5)
  - Device occlusion [Unknown]
  - Confusional state [Unknown]
  - Encephalopathy [Unknown]
  - Dyspnoea [Unknown]
  - Memory impairment [Unknown]

NARRATIVE: CASE EVENT DATE: 20160825
